FAERS Safety Report 9315426 (Version 1)
Quarter: 2013Q2

REPORT INFORMATION
  Report Type: Spontaneous
  Country: US (occurrence: US)
  Receive Date: 20130529
  Receipt Date: 20130529
  Transmission Date: 20140414
  Serious: Yes (Other)
  Sender: FDA-Public Use
  Company Number: US-ASTRAZENECA-2013SE35290

PATIENT
  Age: 70 Year
  Sex: Male

DRUGS (5)
  1. BRILINTA [Suspect]
     Indication: CEREBROVASCULAR ACCIDENT
     Route: 048
     Dates: end: 20130513
  2. BRILINTA [Suspect]
     Indication: CEREBROVASCULAR ACCIDENT
     Route: 048
     Dates: start: 20130514
  3. PLAVIX [Suspect]
     Route: 065
  4. WARFARIN [Concomitant]
     Dates: end: 201305
  5. ASPIRIN [Concomitant]

REACTIONS (4)
  - Gastrointestinal haemorrhage [Unknown]
  - Cerebrovascular accident [Unknown]
  - Drug ineffective [Unknown]
  - Off label use [Unknown]
